FAERS Safety Report 4413226-8 (Version None)
Quarter: 2004Q3

REPORT INFORMATION
  Report Type: 
  Country: None (occurrence: None)
  Receive Date: 20040730
  Receipt Date: 20040730
  Transmission Date: 20050211
  Serious: No
  Sender: FDA-Public Use
  Company Number: None

PATIENT
  Age: 70 Year
  Sex: Male
  Weight: 66 kg

DRUGS (1)
  1. HEPARIN [Suspect]
     Dosage: SQ

REACTIONS (4)
  - ABDOMINAL DISTENSION [None]
  - HAEMATEMESIS [None]
  - MALLORY-WEISS SYNDROME [None]
  - POST PROCEDURAL HAEMORRHAGE [None]
